FAERS Safety Report 7106377-0 (Version None)
Quarter: 2010Q4

REPORT INFORMATION
  Report Type: 
  Country: None (occurrence: None)
  Receive Date: 20101116
  Receipt Date: 20100715
  Transmission Date: 20110411
  Serious: No
  Sender: FDA-Public Use
  Company Number: US-PFIZER INC-2010089237

PATIENT
  Sex: Male
  Weight: 81.179 kg

DRUGS (8)
  1. TOVIAZ [Suspect]
     Indication: BLADDER DISORDER
     Dosage: 8 MG,DAILY
     Dates: start: 20100713
  2. VESICARE [Suspect]
     Indication: BLADDER DISORDER
     Dosage: 5 MG,DAILY
     Route: 048
     Dates: start: 20100101, end: 20100101
  3. HYDROCHLOROTHIAZIDE [Concomitant]
     Indication: HYPERTENSION
     Dosage: 25 MG, 2X/DAY
  4. DOXAZOSIN [Concomitant]
     Indication: HYPERTENSION
     Dosage: 1 MG, DAILY
  5. HYDROXYUREA [Concomitant]
     Indication: THROMBOCYTOSIS
     Dosage: 500 MG, 2X/DAY
  6. ACETAMINOPHEN [Concomitant]
     Indication: ARTHRALGIA
     Dosage: 500 MG, 4X/DAY
  7. LIPITOR [Concomitant]
     Indication: CARDIAC DISORDER
     Dosage: 10 MG, DAILY
     Route: 048
  8. OMEPRAZOLE [Concomitant]
     Indication: ABDOMINAL DISCOMFORT
     Dosage: 120 MG, 2X/DAY

REACTIONS (5)
  - ASTHENIA [None]
  - CONSTIPATION [None]
  - DRY MOUTH [None]
  - POLLAKIURIA [None]
  - SLEEP DISORDER [None]
